FAERS Safety Report 18884305 (Version 3)
Quarter: 2021Q2

REPORT INFORMATION
  Report Type: Spontaneous
  Country: US (occurrence: US)
  Receive Date: 20210211
  Receipt Date: 20210419
  Transmission Date: 20210717
  Serious: No
  Sender: FDA-Public Use
  Company Number: US-AMGEN-USASP2021022288

PATIENT
  Age: 62 Year
  Sex: Male
  Weight: 81.6 kg

DRUGS (1)
  1. MVASI [Suspect]
     Active Substance: BEVACIZUMAB-AWWB
     Indication: RECTAL CANCER METASTATIC
     Dosage: 400 MILLIGRAM, Q2WK
     Route: 065
     Dates: start: 20201105

REACTIONS (3)
  - Product preparation error [Unknown]
  - Intercepted medication error [Unknown]
  - Product communication issue [Unknown]

NARRATIVE: CASE EVENT DATE: 20210128
